FAERS Safety Report 17236831 (Version 1)
Quarter: 2019Q4

REPORT INFORMATION
  Report Type: Spontaneous
  Country: US (occurrence: US)
  Receive Date: 20191211
  Receipt Date: 20191211
  Transmission Date: 20200122
  Serious: No
  Sender: FDA-Public Use
  Company Number: None

PATIENT
  Sex: Male

DRUGS (1)
  1. VOSEVI [Suspect]
     Active Substance: SOFOSBUVIR\VELPATASVIR\VOXILAPREVIR
     Indication: HEPATITIS C
     Dosage: ?          OTHER DOSE:1 TABLET;?
     Route: 048
     Dates: start: 20191002

REACTIONS (3)
  - Feeling abnormal [None]
  - Dizziness [None]
  - Dry mouth [None]
